FAERS Safety Report 20743031 (Version 3)
Quarter: 2022Q2

REPORT INFORMATION
  Report Type: Spontaneous
  Country: PL (occurrence: PL)
  Receive Date: 20220425
  Receipt Date: 20220518
  Transmission Date: 20220721
  Serious: Yes (Hospitalization, Other)
  Sender: FDA-Public Use
  Company Number: PL-GLAXOSMITHKLINE-PLCH2022EME013203

PATIENT
  Age: 31 Year
  Sex: Male

DRUGS (17)
  1. ALPRAZOLAM [Interacting]
     Active Substance: ALPRAZOLAM
     Indication: Depression
     Dosage: 1 MILLIGRAM, ONCE A DAY(AT NIGHT )
     Route: 065
  2. ALPRAZOLAM [Interacting]
     Active Substance: ALPRAZOLAM
     Indication: Insomnia
  3. ALPRAZOLAM [Interacting]
     Active Substance: ALPRAZOLAM
     Indication: Anxiety
  4. ALPRAZOLAM [Interacting]
     Active Substance: ALPRAZOLAM
     Indication: Affective disorder
  5. ATORVASTATIN [Interacting]
     Active Substance: ATORVASTATIN
     Indication: Dyslipidaemia
     Dosage: 40 MILLIGRAM, ONCE A DAY
     Route: 065
  6. RAMIPRIL [Interacting]
     Active Substance: RAMIPRIL
     Indication: Hypertension
     Dosage: 10 MILLIGRAM, ONCE A DAY
     Route: 065
  7. SERTRALINE [Suspect]
     Active Substance: SERTRALINE HYDROCHLORIDE
     Indication: Insomnia
     Dosage: 50 MILLIGRAM, ONCE A DAY(IN THE MORNING)
     Route: 065
  8. SERTRALINE [Suspect]
     Active Substance: SERTRALINE HYDROCHLORIDE
     Indication: Depression
  9. SERTRALINE [Suspect]
     Active Substance: SERTRALINE HYDROCHLORIDE
     Indication: Anxiety
  10. SERTRALINE [Suspect]
     Active Substance: SERTRALINE HYDROCHLORIDE
     Indication: Affective disorder
  11. TADALAFIL [Interacting]
     Active Substance: TADALAFIL
     Indication: Erectile dysfunction
     Dosage: 10 MILLIGRAM (SHORT-TERM BASIS)
     Route: 065
  12. DICLOFENAC [Interacting]
     Active Substance: DICLOFENAC
     Indication: Sacral pain
     Dosage: 150 MILLIGRAM, ONCE A DAY
     Route: 065
  13. DICLOFENAC [Interacting]
     Active Substance: DICLOFENAC
     Indication: Back pain
  14. ACETAMINOPHEN\TRAMADOL [Suspect]
     Active Substance: ACETAMINOPHEN\TRAMADOL
     Indication: Sacral pain
     Dosage: 1 DOSAGE FORM, TWO TIMES A DAY
     Route: 065
  15. ACETAMINOPHEN\TRAMADOL [Suspect]
     Active Substance: ACETAMINOPHEN\TRAMADOL
     Indication: Back pain
  16. DICLOFENAC [Concomitant]
     Active Substance: DICLOFENAC
     Indication: Back pain
     Dosage: 150 MILLIGRAM, ONCE A DAY
     Route: 065
  17. DICLOFENAC [Concomitant]
     Active Substance: DICLOFENAC
     Indication: Sacral pain

REACTIONS (19)
  - Blood pressure increased [Recovering/Resolving]
  - Back pain [Recovered/Resolved]
  - Erectile dysfunction [Recovered/Resolved]
  - Anorgasmia [Recovered/Resolved]
  - Drug interaction [Recovered/Resolved]
  - Hyperaesthesia [Recovered/Resolved]
  - Tachycardia [Recovering/Resolving]
  - Drug level increased [Unknown]
  - Drug ineffective [Unknown]
  - Affective disorder [Recovering/Resolving]
  - Condition aggravated [Recovered/Resolved]
  - Ill-defined disorder [Unknown]
  - Depression [Unknown]
  - Insomnia [Recovering/Resolving]
  - Neuralgia [Recovered/Resolved]
  - Sacral pain [Recovered/Resolved]
  - Tachypnoea [Recovering/Resolving]
  - Pain [Recovered/Resolved]
  - Product use in unapproved indication [Unknown]
